FAERS Safety Report 9842094 (Version 3)
Quarter: 2014Q1

REPORT INFORMATION
  Report Type: Spontaneous
  Country: FR (occurrence: FR)
  Receive Date: 20140124
  Receipt Date: 20140312
  Transmission Date: 20141002
  Serious: Yes (Other)
  Sender: FDA-Public Use
  Company Number: CHPA2014FR001255

PATIENT
  Age: 53 Year
  Sex: Male

DRUGS (8)
  1. NICOTINELL TTS [Suspect]
     Indication: SMOKING CESSATION THERAPY
     Dosage: 21 MG, QD
     Route: 062
     Dates: start: 201401, end: 201401
  2. NICOTINELL TTS [Suspect]
     Dosage: 21 MG, QD
     Route: 062
     Dates: start: 201401, end: 201401
  3. RULID [Concomitant]
     Dosage: 150 UNK, UNK
  4. XANAX [Concomitant]
     Dosage: 0.5 UNK, UNK
  5. KARDEGIC [Concomitant]
     Dosage: 75 UNK, UNK
  6. VASTEN [Concomitant]
     Dosage: 20 UNK, UNK
  7. RENITEC                                 /NET/ [Concomitant]
     Dosage: 20 UNK, UNK
  8. GLUCOPHAGE [Concomitant]
     Dosage: 500 UNK, UNK

REACTIONS (8)
  - Application site eczema [Recovered/Resolved with Sequelae]
  - Application site hypersensitivity [Recovered/Resolved with Sequelae]
  - Application site vesicles [Recovered/Resolved with Sequelae]
  - Skin exfoliation [Recovered/Resolved with Sequelae]
  - Skin disorder [Unknown]
  - Skin lesion [Unknown]
  - Application site erythema [Recovered/Resolved with Sequelae]
  - Application site pruritus [Unknown]
